FAERS Safety Report 5656277-8 (Version None)
Quarter: 2008Q1

REPORT INFORMATION
  Report Type: 
  Country: None (occurrence: None)
  Receive Date: 20080309
  Receipt Date: 20071025
  Transmission Date: 20080703
  Serious: No
  Sender: FDA-Public Use
  Company Number: US-BAYER-200712369BCC

PATIENT
  Age: 85 Year
  Sex: Male
  Weight: 63 kg

DRUGS (11)
  1. ALEVE [Suspect]
     Indication: ARTHRALGIA
     Dosage: TOTAL DAILY DOSE: 220 MG  UNIT DOSE: 220 MG
     Route: 048
     Dates: start: 20070801
  2. CARBIDOPA-LEV [Concomitant]
  3. EXELON [Concomitant]
  4. MELOXICAM [Concomitant]
  5. FOLIC ACID [Concomitant]
  6. NIACIN [Concomitant]
  7. FOCUS FACTOR VITAMIN [Concomitant]
  8. DOXAZOSIN MESYLATE [Concomitant]
  9. MELATONIN [Concomitant]
  10. MOTRIN [Concomitant]
  11. BENADRYL [Concomitant]

REACTIONS (3)
  - DYSPEPSIA [None]
  - ORAL DISCOMFORT [None]
  - THROAT IRRITATION [None]
